FAERS Safety Report 14208570 (Version 2)
Quarter: 2017Q4

REPORT INFORMATION
  Report Type: Spontaneous
  Country: GB (occurrence: GB)
  Receive Date: 20171121
  Receipt Date: 20171128
  Transmission Date: 20180321
  Serious: Yes (Hospitalization, Other)
  Sender: FDA-Public Use
  Company Number: GB-PFIZER INC-2017496642

PATIENT
  Age: 59 Year

DRUGS (4)
  1. TIGECYCLINE. [Suspect]
     Active Substance: TIGECYCLINE
     Indication: PSEUDOMONAS INFECTION
  2. CIPROFLOXACIN. [Concomitant]
     Active Substance: CIPROFLOXACIN
     Indication: PSEUDOMONAS INFECTION
     Dosage: 500 MG, 2X/DAY
     Route: 048
  3. CIPROFLOXACIN. [Concomitant]
     Active Substance: CIPROFLOXACIN
     Indication: CALCIPHYLAXIS
  4. TIGECYCLINE. [Suspect]
     Active Substance: TIGECYCLINE
     Indication: CALCIPHYLAXIS
     Dosage: 50 MG, 2X/DAY (AFTER A 100 MG LOADING DOSE)
     Route: 042

REACTIONS (2)
  - Drug resistance [Unknown]
  - Escherichia bacteraemia [Recovered/Resolved]
